FAERS Safety Report 7719748-6 (Version None)
Quarter: 2011Q3

REPORT INFORMATION
  Report Type: 
  Country: None (occurrence: None)
  Receive Date: 20110831
  Receipt Date: 20110821
  Transmission Date: 20111222
  Serious: Yes (Hospitalization)
  Sender: FDA-Public Use
  Company Number: AU-BIOGENIDEC-2011BI024075

PATIENT
  Age: 48 Year
  Sex: Male

DRUGS (13)
  1. TYSABRI [Suspect]
     Indication: RELAPSING-REMITTING MULTIPLE SCLEROSIS
     Route: 042
     Dates: start: 20100422
  2. PANTOPRAZOLE [Concomitant]
  3. OXYCODONE HCL [Concomitant]
  4. CARBAMAZEPINE [Concomitant]
  5. BACLOFEN [Concomitant]
  6. METHADONE HCL [Concomitant]
  7. DULOXETIME HYDROCHLORIDE [Concomitant]
  8. ACETAMINOPHEN [Concomitant]
  9. FENOFIBRATE [Concomitant]
  10. COLOXYL AND SENNA [Concomitant]
     Route: 048
  11. TESTOSTERONE [Concomitant]
     Route: 042
  12. PREGABALIN [Concomitant]
  13. ROSUVASTATIN [Concomitant]

REACTIONS (1)
  - TREMOR [None]
